FAERS Safety Report 9552518 (Version 1)
Quarter: 2013Q3

REPORT INFORMATION
  Report Type: Spontaneous
  Country: US (occurrence: None)
  Receive Date: 20130729
  Receipt Date: 20130729
  Transmission Date: 20140515
  Serious: Yes (Hospitalization, Other)
  Sender: FDA-Public Use
  Company Number: 1303USA006807

PATIENT
  Age: 58 Year
  Sex: Female

DRUGS (4)
  1. REBETOL (RIBAVIRIN) CAPSULE [Suspect]
     Indication: CHRONIC HEPATITIS C
     Route: 048
     Dates: start: 20120829, end: 20120912
  2. VICTRELIS (BOCEPREVIR) CAPSULE [Suspect]
     Route: 048
     Dates: start: 20121025
  3. PEGASYS (PEGINTERFERON ALFA-2A) [Suspect]
     Indication: CHRONIC HEPATITIS C
     Dates: start: 20120829
  4. PROGRAF (TACROLIMUS) [Concomitant]

REACTIONS (13)
  - Anaemia [None]
  - Palpitations [None]
  - Depressed mood [None]
  - Muscle spasms [None]
  - Abdominal pain [None]
  - Weight decreased [None]
  - Nausea [None]
  - Decreased appetite [None]
  - Haematocrit decreased [None]
  - Dry mouth [None]
  - Cheilitis [None]
  - Oral pain [None]
  - Diarrhoea [None]
